FAERS Safety Report 24993737 (Version 1)
Quarter: 2025Q1

REPORT INFORMATION
  Report Type: Spontaneous
  Country: CA (occurrence: CA)
  Receive Date: 20250221
  Receipt Date: 20250221
  Transmission Date: 20250409
  Serious: Yes (Hospitalization)
  Sender: JOHNSON AND JOHNSON
  Company Number: CA-JNJFOC-20250230725

PATIENT
  Age: 81 Year
  Sex: Male
  Weight: 110 kg

DRUGS (21)
  1. ERLEADA [Suspect]
     Active Substance: APALUTAMIDE
     Indication: Prostate cancer
     Route: 048
  2. ASPIRIN [Concomitant]
     Active Substance: ASPIRIN
  3. AMLODIPINE [Concomitant]
     Active Substance: AMLODIPINE BESYLATE
  4. AZITHROMYCIN [Concomitant]
     Active Substance: AZITHROMYCIN
  5. BACLOFEN [Concomitant]
     Active Substance: BACLOFEN
  6. BISACODYL [Concomitant]
     Active Substance: BISACODYL
  7. BISOPROLOL [Concomitant]
     Active Substance: BISOPROLOL
  8. CALCIUM CARBONATE [Concomitant]
     Active Substance: CALCIUM CARBONATE
  9. ETHAMBUTOL [Concomitant]
     Active Substance: ETHAMBUTOL HYDROCHLORIDE
  10. GOSERELIN ACETATECOMP-GOSE [Concomitant]
  11. LACTULOSE [Concomitant]
     Active Substance: LACTULOSE
  12. LOPERAMIDE [Concomitant]
     Active Substance: LOPERAMIDE
  13. MELATONIN [Concomitant]
     Active Substance: MELATONIN
  14. MOMETASONE [Concomitant]
     Active Substance: MOMETASONE
  15. PANTOPRAZOLE [Concomitant]
     Active Substance: PANTOPRAZOLE
     Route: 042
  16. POLYETHYLENE GLYCO [Concomitant]
  17. PREGABALIN [Concomitant]
     Active Substance: PREGABALIN
  18. PROCHLORPERAZINE [Concomitant]
     Active Substance: PROCHLORPERAZINE
  19. RIFAMPIN [Concomitant]
     Active Substance: RIFAMPIN
  20. SOLIFENACIN [Concomitant]
     Active Substance: SOLIFENACIN
  21. VITAMIN D [Concomitant]
     Active Substance: VITAMIN D NOS

REACTIONS (2)
  - Hypertension [Recovered/Resolved]
  - Headache [Recovered/Resolved]
